FAERS Safety Report 9098944 (Version 1)
Quarter: 2013Q1

REPORT INFORMATION
  Report Type: Spontaneous
  Country: CA (occurrence: CA)
  Receive Date: 20130214
  Receipt Date: 20130214
  Transmission Date: 20140127
  Serious: Yes (Other)
  Sender: FDA-Public Use
  Company Number: PHHY2013CA012596

PATIENT
  Sex: 0

DRUGS (33)
  1. GLEEVEC [Suspect]
     Dosage: 400 MG, QD (1 EVERY 1 DAY)
     Route: 048
  2. GLEEVEC [Suspect]
     Dosage: 400 MG, QD (1 EVERY 1 DAY)
     Route: 048
  3. GLEEVEC [Suspect]
     Dosage: 400 MG, QD (1 EVERY 1 DAY)
  4. MERCAPTOPURINE-6 [Suspect]
     Dosage: 50 MG/M2, QH
     Route: 048
  5. MERCAPTOPURINE-6 [Suspect]
     Dosage: 50 MG/M2, QH
     Route: 048
  6. CYTARABINE [Suspect]
     Dosage: 40 MG
     Route: 037
  7. CYTARABINE [Suspect]
     Dosage: 40 MG
     Route: 037
  8. CYTARABINE [Suspect]
     Dosage: 40 MG
     Route: 037
  9. DEXAMETHASONE SANDOZ [Suspect]
     Dosage: 9.0 MG/M2, BID
     Route: 048
  10. DOXORUBICIN [Suspect]
     Dosage: 30 MG/M2
     Route: 042
  11. DOXORUBICIN [Suspect]
     Dosage: 30 MG/M2
     Route: 042
  12. DOXORUBICIN [Suspect]
     Dosage: 30 MG/M2
     Route: 042
  13. HYDROCORTISONE [Suspect]
     Dosage: 15.0 MG
     Route: 037
  14. HYDROCORTISONE [Suspect]
     Dosage: 15.0 MG
     Route: 037
  15. HYDROCORTISONE [Suspect]
     Dosage: 15.0 MG
     Route: 037
  16. L-ASPARAGINASE [Suspect]
     Dosage: UNK UKN, UNK
     Route: 030
  17. L-ASPARAGINASE [Suspect]
     Dosage: UNK UKN, CYCLICAL
     Route: 030
  18. METHOTREXATE [Suspect]
     Dosage: 12.0 MG
     Route: 037
  19. METHOTREXATE [Suspect]
     Dosage: 12.0 MG
     Route: 037
  20. METHOTREXATE [Suspect]
     Dosage: 12.0 MG
     Route: 037
  21. METHOTREXATE [Suspect]
     Dosage: 30 MG/M2
     Route: 042
  22. PREDNISONE [Suspect]
     Dosage: 10.0 MG, QID
     Route: 048
  23. THERAPEUTIC RADIOPHARMACEUTICALS [Suspect]
  24. VINCRISTINE SULFATE [Suspect]
     Dosage: 2.0 MG
     Route: 042
  25. VINCRISTINE SULFATE [Suspect]
     Dosage: 2.0 MG
     Route: 042
  26. VINCRISTINE SULFATE [Suspect]
     Dosage: 2.0 MG
     Route: 042
  27. TRIMETHOPRIM SULFAMETHOXAZOLE [Concomitant]
  28. PENTAMIDINE ISETHIONATE [Concomitant]
  29. LEUCOVORIN [Concomitant]
  30. FLUCONAZOLE [Concomitant]
  31. RISEDRONATE SODIUM [Concomitant]
  32. ALENDRONATE [Concomitant]
  33. CALCIUM + VITAMIN D [Concomitant]

REACTIONS (1)
  - Pulmonary embolism [Unknown]
